FAERS Safety Report 9554478 (Version 2)
Quarter: 2013Q4

REPORT INFORMATION
  Report Type: Report from Study
  Country: ES (occurrence: ES)
  Receive Date: 20130925
  Receipt Date: 20131009
  Transmission Date: 20140711
  Serious: Yes (Other)
  Sender: FDA-Public Use
  Company Number: ES-B.I. PHARMACEUTICALS,INC./RIDGEFIELD-2013-BI-29730GD

PATIENT
  Sex: 0

DRUGS (2)
  1. PRADAXA [Suspect]
  2. PROTON PUMP INHIBITORS [Concomitant]

REACTIONS (2)
  - Diarrhoea [Unknown]
  - Renal impairment [Unknown]
